FAERS Safety Report 5192817-3 (Version None)
Quarter: 2006Q4

REPORT INFORMATION
  Report Type: 
  Country: None (occurrence: None)
  Receive Date: 20061228
  Receipt Date: 20051110
  Transmission Date: 20070319
  Serious: No
  Sender: FDA-Public Use
  Company Number: US-GLAXOSMITHKLINE-A0581831A

PATIENT
  Age: 71 Year
  Sex: Female

DRUGS (8)
  1. FLONASE [Suspect]
     Dosage: 1PUFF TWICE PER DAY
     Route: 045
     Dates: start: 20051019
  2. NORVASC [Concomitant]
  3. COLESTID [Concomitant]
  4. PARNATE [Concomitant]
  5. LIBRAX [Concomitant]
  6. XALATAN [Concomitant]
  7. MEDROL [Concomitant]
  8. OMNICEF [Concomitant]

REACTIONS (1)
  - PRODUCTIVE COUGH [None]
